FAERS Safety Report 18661781 (Version 1)
Quarter: 2020Q4

REPORT INFORMATION
  Report Type: Spontaneous
  Country: DK (occurrence: DK)
  Receive Date: 20201224
  Receipt Date: 20201224
  Transmission Date: 20210114
  Serious: Yes (Hospitalization, Other)
  Sender: FDA-Public Use
  Company Number: DK-BRISTOL-MYERS SQUIBB COMPANY-BMS-2020-108422

PATIENT
  Age: 74 Year
  Sex: Male

DRUGS (1)
  1. OPDIVO [Suspect]
     Active Substance: NIVOLUMAB
     Indication: MALIGNANT MELANOMA
     Dosage: STRENGTH: UNKNOWN  DOSE: UNKNOWN
     Route: 065
     Dates: start: 20190205, end: 20190306

REACTIONS (15)
  - Back pain [Recovered/Resolved]
  - Dyspnoea [Unknown]
  - Muscle atrophy [Recovering/Resolving]
  - Myositis [Unknown]
  - Rhabdomyolysis [Recovering/Resolving]
  - Arthralgia [Recovered/Resolved]
  - Myalgia [Recovered/Resolved]
  - Pulmonary thrombosis [Recovering/Resolving]
  - Hepatitis [Recovering/Resolving]
  - Neuritis [Unknown]
  - Vocal cord paresis [Unknown]
  - Decreased appetite [Recovered/Resolved]
  - Pulmonary oedema [Recovered/Resolved]
  - Compression fracture [Not Recovered/Not Resolved]
  - Fatigue [Recovered/Resolved]

NARRATIVE: CASE EVENT DATE: 2019
